FAERS Safety Report 9279076 (Version 2)
Quarter: 2013Q2

REPORT INFORMATION
  Report Type: Spontaneous
  Country: FR (occurrence: FR)
  Receive Date: 20130508
  Receipt Date: 20130626
  Transmission Date: 20140414
  Serious: Yes (Hospitalization)
  Sender: FDA-Public Use
  Company Number: FR-ASTRAZENECA-2013SE29773

PATIENT
  Age: 79 Day
  Sex: Male
  Weight: 4.3 kg

DRUGS (1)
  1. INEXIUM [Suspect]
     Indication: GASTROOESOPHAGEAL REFLUX DISEASE
     Route: 048
     Dates: start: 20130328, end: 20130401

REACTIONS (5)
  - Gastrointestinal disorder [Recovered/Resolved]
  - Neonatal disorder [Recovered/Resolved]
  - Feeding disorder neonatal [Recovered/Resolved]
  - Eyelid oedema [Recovered/Resolved]
  - Off label use [Unknown]
